FAERS Safety Report 8417663-6 (Version None)
Quarter: 2012Q2

REPORT INFORMATION
  Report Type: 
  Country: None (occurrence: None)
  Receive Date: 20120606
  Receipt Date: 20120529
  Transmission Date: 20120825
  Serious: Yes (Hospitalization, Other)
  Sender: FDA-Public Use
  Company Number: JP-VERTEX PHARMACEUTICALS INC.-AE-2012-007616

PATIENT
  Age: 70 Year
  Sex: Male

DRUGS (12)
  1. LOXOPROFEN [Concomitant]
     Route: 048
     Dates: start: 20120220, end: 20120318
  2. PEG-INTRON [Concomitant]
     Indication: HEPATITIS C
     Route: 051
     Dates: start: 20120221
  3. PEG-INTRON [Concomitant]
     Route: 051
     Dates: end: 20120508
  4. URSO 250 [Concomitant]
     Route: 048
     Dates: end: 20120514
  5. REBETOL [Concomitant]
     Route: 048
     Dates: start: 20120328, end: 20120423
  6. MUCOSTA [Concomitant]
     Route: 048
     Dates: start: 20120220, end: 20120318
  7. TELAVIC (TELAPREVIR) [Suspect]
     Indication: HEPATITIS C
     Route: 048
     Dates: start: 20120221, end: 20120513
  8. BETAMETHASONE [Concomitant]
     Route: 051
  9. REBETOL [Concomitant]
     Indication: HEPATITIS C
     Route: 048
     Dates: start: 20120221, end: 20120327
  10. PRIMPERAN TAB [Concomitant]
     Dates: start: 20120514, end: 20120514
  11. REBETOL [Concomitant]
     Route: 048
     Dates: start: 20120424, end: 20120513
  12. MEVARICH [Concomitant]
     Route: 048

REACTIONS (6)
  - SEPSIS [None]
  - HAEMOGLOBIN DECREASED [None]
  - PNEUMONIA [None]
  - RASH [None]
  - RENAL IMPAIRMENT [None]
  - RETINOPATHY [None]
